FAERS Safety Report 9009687 (Version 1)
Quarter: 2013Q1

REPORT INFORMATION
  Report Type: Spontaneous
  Country: CA (occurrence: CA)
  Receive Date: 20130112
  Receipt Date: 20130112
  Transmission Date: 20140127
  Serious: Yes (Other)
  Sender: FDA-Public Use
  Company Number: CA-AMGEN-CANSP2013000136

PATIENT
  Age: 70 Year
  Sex: Female
  Weight: 65.45 kg

DRUGS (1)
  1. PROLIA [Suspect]
     Indication: OSTEOPOROSIS POSTMENOPAUSAL

REACTIONS (6)
  - Hernia [Unknown]
  - Ear infection [Unknown]
  - Sinusitis [Unknown]
  - Oral herpes [Unknown]
  - Post procedural infection [Unknown]
  - Malaise [Unknown]
